FAERS Safety Report 19012258 (Version 2)
Quarter: 2021Q1

REPORT INFORMATION
  Report Type: Report from Study
  Country: US (occurrence: US)
  Receive Date: 20210315
  Receipt Date: 20210322
  Transmission Date: 20210420
  Serious: Yes (Death)
  Sender: FDA-Public Use
  Company Number: US-PFIZER INC-2021264667

PATIENT

DRUGS (5)
  1. IFOSFAMIDE. [Suspect]
     Active Substance: IFOSFAMIDE
     Indication: SARCOMA
     Dosage: 2500 MG/M2, DAILY(INTRAVENOUS INFUSION VIA A PERIPHERAL LINE DAYS 1 TO 3, )
  2. FILGRASTIM [Concomitant]
     Active Substance: FILGRASTIM
     Dosage: 5 MG/KG, DAILY (STARTING ON DAY 5 AND CONTINUING DAILY UNTIL WBC RECOVERED)
     Route: 058
  3. DOXORUBICIN HCL [Suspect]
     Active Substance: DOXORUBICIN HYDROCHLORIDE
     Indication: SARCOMA
     Dosage: 20 MG/M2, DAILY(ASACONTINUOUSINTRAVENOUSINFUSION VIA A CENTRAL LINE DAYS 1 TO 3, )6 CYCLIC
     Route: 042
  4. MESNA. [Suspect]
     Active Substance: MESNA
     Indication: SARCOMA
     Dosage: 2500 MG/M2, DAILY( INFUSION VIA A PERIPHERAL LINEDAYS1TO4,)
     Route: 042
  5. DACARBAZINE. [Suspect]
     Active Substance: DACARBAZINE
     Indication: SARCOMA
     Dosage: 225 MG/M2, DAILY( AS A CONTINUOUS INTRAVENOUS INFUSION VIA A CENTRAL LINE DAYS 1 TO 3. )
     Route: 042

REACTIONS (2)
  - Sepsis [Fatal]
  - Respiratory failure [Fatal]
